FAERS Safety Report 19080632 (Version 1)
Quarter: 2021Q1

REPORT INFORMATION
  Report Type: Spontaneous
  Country: JP (occurrence: JP)
  Receive Date: 20210331
  Receipt Date: 20210331
  Transmission Date: 20210420
  Serious: Yes (Other)
  Sender: FDA-Public Use
  Company Number: JP-ELI_LILLY_AND_COMPANY-JP202103011605

PATIENT
  Age: 75 Year

DRUGS (3)
  1. RANMARK [Concomitant]
     Active Substance: DENOSUMAB
  2. LETROZOLE. [Concomitant]
     Active Substance: LETROZOLE
     Indication: BREAST CANCER
  3. VERZENIO [Suspect]
     Active Substance: ABEMACICLIB
     Indication: BREAST CANCER
     Dosage: 200 MG, UNKNOWN
     Route: 048

REACTIONS (2)
  - Diarrhoea [Unknown]
  - Osteonecrosis of jaw [Unknown]
